FAERS Safety Report 6059308-9 (Version None)
Quarter: 2009Q1

REPORT INFORMATION
  Report Type: 
  Country: None (occurrence: None)
  Receive Date: 20090128
  Receipt Date: 20090128
  Transmission Date: 20090719
  Serious: Yes (Other)
  Sender: FDA-Public Use
  Company Number: None

PATIENT
  Age: 80 Year
  Sex: Male
  Weight: 99.3377 kg

DRUGS (1)
  1. ZETIA [Suspect]
     Dosage: 1 DAILY
     Dates: start: 20090111, end: 20090116

REACTIONS (3)
  - FATIGUE [None]
  - PAIN IN EXTREMITY [None]
  - TOOTH DISCOLOURATION [None]
